FAERS Safety Report 5560351-4 (Version None)
Quarter: 2007Q4

REPORT INFORMATION
  Report Type: 
  Country: None (occurrence: None)
  Receive Date: 20071214
  Receipt Date: 20071105
  Transmission Date: 20080405
  Serious: No
  Sender: FDA-Public Use
  Company Number: US-ABBOTT-07P-163-0423526-00

PATIENT
  Sex: Female
  Weight: 64.468 kg

DRUGS (5)
  1. HUMIRA [Suspect]
     Indication: ANKYLOSING SPONDYLITIS
     Route: 058
     Dates: start: 20070915
  2. SULFASALAZINE [Concomitant]
     Indication: ARTHRITIS
  3. LEVOTHYROXINE SODIUM [Concomitant]
     Indication: HYPOTHYROIDISM
  4. CELECOXIB [Concomitant]
     Indication: ARTHRITIS
  5. IRBESARTAN [Concomitant]
     Indication: HYPERTENSION

REACTIONS (3)
  - EYE SWELLING [None]
  - PHARYNGOLARYNGEAL PAIN [None]
  - RHINORRHOEA [None]
